FAERS Safety Report 7187276-5 (Version None)
Quarter: 2010Q4

REPORT INFORMATION
  Report Type: 
  Country: None (occurrence: None)
  Receive Date: 20101222
  Receipt Date: 20101220
  Transmission Date: 20110411
  Serious: Yes (Other)
  Sender: FDA-Public Use
  Company Number: US-ABBOTT-10P-163-0692607-00

PATIENT
  Sex: Female

DRUGS (2)
  1. LUPRON DEPOT [Suspect]
     Indication: PRODUCT USED FOR UNKNOWN INDICATION
     Dates: start: 20091229
  2. CLOMID [Concomitant]
     Indication: PRODUCT USED FOR UNKNOWN INDICATION
     Dates: start: 20100501

REACTIONS (7)
  - ABORTION SPONTANEOUS [None]
  - ACNE [None]
  - ARTHRALGIA [None]
  - DRUG INEFFECTIVE [None]
  - ENDOMETRIOSIS [None]
  - HOT FLUSH [None]
  - INSOMNIA [None]
